FAERS Safety Report 15391148 (Version 1)
Quarter: 2018Q3

REPORT INFORMATION
  Report Type: Spontaneous
  Country: US (occurrence: US)
  Receive Date: 20180910
  Receipt Date: 20180910
  Transmission Date: 20181010
  Serious: No
  Sender: FDA-Public Use
  Company Number: None

PATIENT
  Age: 66 Year
  Sex: Female

DRUGS (1)
  1. OPSUMIT [Suspect]
     Active Substance: MACITENTAN
     Indication: PULMONARY ARTERIAL HYPERTENSION
     Dates: start: 20180717

REACTIONS (6)
  - Gout [None]
  - Constipation [None]
  - Abdominal pain [None]
  - Urinary tract infection [None]
  - Acute kidney injury [None]
  - Erythema [None]

NARRATIVE: CASE EVENT DATE: 20180814
